FAERS Safety Report 8598834 (Version 3)
Quarter: 2013Q3

REPORT INFORMATION
  Report Type: Spontaneous
  Country: US (occurrence: US)
  Receive Date: 20120605
  Receipt Date: 20130925
  Transmission Date: 20140515
  Serious: Yes (Hospitalization, Disabling, Other)
  Sender: FDA-Public Use
  Company Number: US-ASTRAZENECA-2012SE35878

PATIENT
  Age: 16666 Day
  Sex: Female

DRUGS (33)
  1. NEXIUM [Suspect]
     Indication: HIATUS HERNIA
     Route: 048
     Dates: start: 20020628
  2. NEXIUM [Suspect]
     Indication: DYSPEPSIA
     Route: 048
     Dates: start: 20020628
  3. NEXIUM [Suspect]
     Indication: GASTROOESOPHAGEAL REFLUX DISEASE
     Route: 048
     Dates: start: 20020628
  4. NEXIUM [Suspect]
     Indication: GASTROOESOPHAGEAL REFLUX DISEASE
     Route: 048
     Dates: start: 20020628
  5. NEXIUM [Suspect]
     Indication: HIATUS HERNIA
     Route: 048
     Dates: start: 20050802
  6. NEXIUM [Suspect]
     Indication: DYSPEPSIA
     Route: 048
     Dates: start: 20050802
  7. NEXIUM [Suspect]
     Indication: GASTROOESOPHAGEAL REFLUX DISEASE
     Route: 048
     Dates: start: 20050802
  8. NEXIUM [Suspect]
     Indication: GASTROOESOPHAGEAL REFLUX DISEASE
     Route: 048
     Dates: start: 20050802
  9. NEXIUM [Suspect]
     Indication: HIATUS HERNIA
     Dosage: TWICE, 1 AM AND 1 PM AT BEDTIME
     Route: 048
     Dates: start: 20060105, end: 201212
  10. NEXIUM [Suspect]
     Indication: DYSPEPSIA
     Dosage: TWICE, 1 AM AND 1 PM AT BEDTIME
     Route: 048
     Dates: start: 20060105, end: 201212
  11. NEXIUM [Suspect]
     Indication: GASTROOESOPHAGEAL REFLUX DISEASE
     Dosage: TWICE, 1 AM AND 1 PM AT BEDTIME
     Route: 048
     Dates: start: 20060105, end: 201212
  12. NEXIUM [Suspect]
     Indication: GASTROOESOPHAGEAL REFLUX DISEASE
     Dosage: TWICE, 1 AM AND 1 PM AT BEDTIME
     Route: 048
     Dates: start: 20060105, end: 201212
  13. LEVOXYL [Concomitant]
     Dosage: 150 MCG- 175 MCG
     Dates: start: 20050628
  14. CYCLOBENZAPRINE [Concomitant]
     Indication: NEURALGIA
     Dates: start: 20020816
  15. CYCLOBENZAPRINE [Concomitant]
     Indication: HYPOAESTHESIA
     Dates: start: 20020816
  16. CYCLOBENZAPRINE [Concomitant]
     Indication: NEURALGIA
     Dates: start: 20051031
  17. CYCLOBENZAPRINE [Concomitant]
     Indication: HYPOAESTHESIA
     Dates: start: 20051031
  18. CYCLOBENZAPRINE [Concomitant]
     Indication: NEURALGIA
  19. CYCLOBENZAPRINE [Concomitant]
     Indication: HYPOAESTHESIA
  20. PSEUDOEPHEDR [Concomitant]
     Dates: start: 20050110
  21. RANITIDINE [Concomitant]
     Indication: GASTROOESOPHAGEAL REFLUX DISEASE
     Dates: start: 201212, end: 201305
  22. ROLAIDS [Concomitant]
  23. ALKA-SELTZER [Concomitant]
  24. TUMS [Concomitant]
     Indication: GASTROOESOPHAGEAL REFLUX DISEASE
  25. LEVOTHYROXINE [Concomitant]
     Indication: THYROID DISORDER
     Dosage: 137 1 AM
  26. NEURONTIN [Concomitant]
  27. DIFLUCAN [Concomitant]
  28. OMEPRAZOLE [Concomitant]
     Dates: start: 20090429
  29. WARFARIN [Concomitant]
     Dates: start: 20101005
  30. OYSTER SHELL [Concomitant]
     Dates: start: 20100228
  31. ZYRTEC [Concomitant]
     Dates: start: 20030909
  32. MOTRIN [Concomitant]
     Dates: start: 20030909
  33. DOCUSATE SODIUM [Concomitant]
     Dates: start: 20100909

REACTIONS (12)
  - Ankle fracture [Unknown]
  - Haematemesis [Unknown]
  - Fall [Unknown]
  - Osteoporosis [Unknown]
  - Tibia fracture [Unknown]
  - Fibula fracture [Unknown]
  - Carpal tunnel syndrome [Unknown]
  - Thyroid disorder [Unknown]
  - Glaucoma [Unknown]
  - Hypophosphatasia [Unknown]
  - Mononeuritis [Unknown]
  - Back pain [Unknown]
